FAERS Safety Report 7623738-1 (Version None)
Quarter: 2011Q3

REPORT INFORMATION
  Report Type: 
  Country: None (occurrence: None)
  Receive Date: 20110720
  Receipt Date: 20110713
  Transmission Date: 20111222
  Serious: Yes (Hospitalization)
  Sender: FDA-Public Use
  Company Number: US-GLAXOSMITHKLINE-A0937226A

PATIENT
  Age: 50 Year
  Sex: Female
  Weight: 120.5 kg

DRUGS (1)
  1. FLOLAN [Suspect]
     Indication: COR PULMONALE CHRONIC
     Dosage: 22NGKM UNKNOWN
     Route: 065
     Dates: start: 20110321

REACTIONS (1)
  - MENTAL DISORDER [None]
